FAERS Safety Report 25771316 (Version 1)
Quarter: 2025Q3

REPORT INFORMATION
  Report Type: Spontaneous
  Country: US (occurrence: US)
  Receive Date: 20250908
  Receipt Date: 20250908
  Transmission Date: 20251020
  Serious: No
  Sender: DOMPE FARMACEUTICI
  Company Number: US-FARMAPROD-202504-1215

PATIENT
  Sex: Male

DRUGS (8)
  1. OXERVATE [Suspect]
     Active Substance: CENEGERMIN-BKBJ
     Indication: Neurotrophic keratopathy
     Route: 047
     Dates: start: 20250409
  2. OXERVATE [Suspect]
     Active Substance: CENEGERMIN-BKBJ
  3. OXERVATE [Suspect]
     Active Substance: CENEGERMIN-BKBJ
  4. MAGNESIUM [Concomitant]
     Active Substance: MAGNESIUM
  5. MULTI-VITAMIN DAILY [Concomitant]
  6. CYCLOSPORINE [Concomitant]
     Active Substance: CYCLOSPORINE
  7. MIEBO [Concomitant]
     Active Substance: PERFLUOROHEXYLOCTANE
  8. TESTOSTERONE CYPIONATE [Concomitant]
     Active Substance: TESTOSTERONE CYPIONATE

REACTIONS (7)
  - Nasal discomfort [Unknown]
  - Blood pressure increased [Unknown]
  - Product dose omission issue [Unknown]
  - Ocular discomfort [Not Recovered/Not Resolved]
  - Eye swelling [Unknown]
  - Ocular hyperaemia [Unknown]
  - Eye pain [Unknown]
